FAERS Safety Report 6153209-3 (Version None)
Quarter: 2009Q2

REPORT INFORMATION
  Report Type: 
  Country: None (occurrence: None)
  Receive Date: 20090409
  Receipt Date: 20090407
  Transmission Date: 20091009
  Serious: Yes (Death, Other)
  Sender: FDA-Public Use
  Company Number: GXKR2008DE07847

PATIENT
  Sex: Male
  Weight: 0.1 kg

DRUGS (3)
  1. PREDNISOLONE [Suspect]
     Dosage: SEE IMAGE
     Route: 064
     Dates: start: 20080601, end: 20080620
  2. PREDNISOLONE [Suspect]
     Dosage: SEE IMAGE
     Route: 064
     Dates: start: 20080622, end: 20080701
  3. PREDNISOLONE [Suspect]
     Dosage: SEE IMAGE
     Route: 064
     Dates: start: 20080701, end: 20080801

REACTIONS (3)
  - ABORTION LATE [None]
  - MATERNAL DRUGS AFFECTING FOETUS [None]
  - STILLBIRTH [None]
